FAERS Safety Report 5998199-9 (Version None)
Quarter: 2008Q4

REPORT INFORMATION
  Report Type: 
  Country: None (occurrence: None)
  Receive Date: 20081213
  Receipt Date: 20080624
  Transmission Date: 20090506
  Serious: No
  Sender: FDA-Public Use
  Company Number: US-AMGEN-KDL289905

PATIENT
  Sex: Female

DRUGS (3)
  1. ENBREL [Suspect]
     Indication: RHEUMATOID ARTHRITIS
     Route: 058
     Dates: start: 20071101
  2. PLAQUENIL [Concomitant]
     Dates: start: 20070301
  3. METHOTREXATE [Concomitant]
     Dates: start: 20070601

REACTIONS (2)
  - INJECTION SITE IRRITATION [None]
  - OEDEMA PERIPHERAL [None]
